FAERS Safety Report 14017552 (Version 1)
Quarter: 2017Q3

REPORT INFORMATION
  Report Type: Spontaneous
  Country: MA (occurrence: MA)
  Receive Date: 20170927
  Receipt Date: 20170927
  Transmission Date: 20171128
  Serious: Yes (Hospitalization)
  Sender: FDA-Public Use
  Company Number: MA-ABBVIE-17P-110-2114545-00

PATIENT
  Age: 65 Year
  Sex: Female

DRUGS (2)
  1. RISPERIDONE. [Concomitant]
     Active Substance: RISPERIDONE
     Indication: PRODUCT USED FOR UNKNOWN INDICATION
  2. VALPROATE SODIUM. [Suspect]
     Active Substance: VALPROATE SODIUM
     Indication: FOCAL DYSCOGNITIVE SEIZURES
     Route: 065

REACTIONS (17)
  - Paraparesis [Recovered/Resolved]
  - Pyramidal tract syndrome [Recovered/Resolved]
  - Hyperreflexia [Recovered/Resolved]
  - Social avoidant behaviour [Recovered/Resolved]
  - Seizure [Recovered/Resolved]
  - Disorientation [Recovered/Resolved]
  - Disturbance in attention [Recovered/Resolved]
  - Aphasia [Recovered/Resolved]
  - Pernicious anaemia [Recovered/Resolved]
  - Abnormal behaviour [Recovered/Resolved]
  - Dementia [Recovered/Resolved]
  - Myelopathy [Recovered/Resolved]
  - Extensor plantar response [Recovered/Resolved]
  - Vitamin B12 deficiency [Recovered/Resolved]
  - Memory impairment [Recovered/Resolved]
  - Apraxia [Recovered/Resolved]
  - Psychotic disorder [Recovered/Resolved]
